FAERS Safety Report 15681738 (Version 1)
Quarter: 2018Q4

REPORT INFORMATION
  Report Type: Spontaneous
  Country: UA (occurrence: UA)
  Receive Date: 20181203
  Receipt Date: 20181203
  Transmission Date: 20190205
  Serious: Yes (Other)
  Sender: FDA-Public Use
  Company Number: UA-CELLTRION INC.-2018UA024183

PATIENT

DRUGS (3)
  1. FLAMMEGIS [Suspect]
     Active Substance: INFLIXIMAB
     Dosage: 300 MG PER 4 WEEK
     Route: 042
     Dates: start: 20181016, end: 20181016
  2. FLAMMEGIS [Suspect]
     Active Substance: INFLIXIMAB
     Dosage: 300 MG PER 4 WEEK
     Route: 042
     Dates: start: 20181113, end: 20181113
  3. FLAMMEGIS [Suspect]
     Active Substance: INFLIXIMAB
     Indication: PSORIATIC ARTHROPATHY
     Dosage: 300 MG PER 2 WEEK
     Route: 042
     Dates: start: 20181002, end: 20181002

REACTIONS (1)
  - Renal cancer [Unknown]
